FAERS Safety Report 8451269-8 (Version None)
Quarter: 2012Q2

REPORT INFORMATION
  Report Type: 
  Country: None (occurrence: None)
  Receive Date: 20120620
  Receipt Date: 20120301
  Transmission Date: 20120825
  Serious: No
  Sender: FDA-Public Use
  Company Number: US-VERTEX PHARMACEUTICALS INC.-AE-2012-002152

PATIENT
  Sex: Female
  Weight: 86.714 kg

DRUGS (10)
  1. CLONAZEPAM [Concomitant]
     Route: 048
  2. NEURONTIN [Concomitant]
     Route: 048
  3. SKELAXIN [Concomitant]
     Route: 048
  4. SEROQUEL [Concomitant]
     Route: 048
  5. TRAZODONE HCL [Concomitant]
     Route: 048
  6. PEGASYS [Concomitant]
     Indication: HEPATITIS C
     Route: 058
     Dates: start: 20111223
  7. RIBAVIRIN [Concomitant]
     Indication: HEPATITIS C
     Route: 048
     Dates: start: 20111223
  8. LEVOTHYROXINE SODIUM [Concomitant]
     Route: 048
  9. BUTRANS [Concomitant]
     Route: 061
  10. INCIVEK [Suspect]
     Indication: HEPATITIS C
     Route: 048
     Dates: start: 20111223

REACTIONS (3)
  - RASH PRURITIC [None]
  - WEIGHT INCREASED [None]
  - PRURITUS [None]
